FAERS Safety Report 6355612-5 (Version None)
Quarter: 2009Q3

REPORT INFORMATION
  Report Type: 
  Country: None (occurrence: None)
  Receive Date: 20090914
  Receipt Date: 20090904
  Transmission Date: 20100115
  Serious: Yes (Death)
  Sender: FDA-Public Use
  Company Number: JP-GENENTECH-290041

PATIENT
  Age: 73 Year
  Sex: Female
  Weight: 40 kg

DRUGS (4)
  1. XOLAIR [Suspect]
     Indication: STATUS ASTHMATICUS
     Dosage: 75 MG, SINGLE
     Route: 058
     Dates: start: 20090803
  2. POLYGAM S/D [Concomitant]
     Indication: DRUG USE FOR UNKNOWN INDICATION
  3. PREDNISONE [Concomitant]
     Indication: DRUG USE FOR UNKNOWN INDICATION
  4. ZOSYN [Concomitant]
     Indication: DRUG USE FOR UNKNOWN INDICATION

REACTIONS (1)
  - PNEUMONIA [None]
